FAERS Safety Report 7484230-0 (Version None)
Quarter: 2011Q2

REPORT INFORMATION
  Report Type: 
  Country: None (occurrence: None)
  Receive Date: 20110517
  Receipt Date: 20110513
  Transmission Date: 20111010
  Serious: Yes (Death)
  Sender: FDA-Public Use
  Company Number: JP-SANOFI-AVENTIS-2011SA029736

PATIENT

DRUGS (1)
  1. APIDRA [Suspect]
     Indication: DIABETES MELLITUS
     Route: 058

REACTIONS (1)
  - DEATH [None]
